FAERS Safety Report 7995293-8 (Version None)
Quarter: 2011Q4

REPORT INFORMATION
  Report Type: 
  Country: None (occurrence: None)
  Receive Date: 20111220
  Receipt Date: 20111205
  Transmission Date: 20120403
  Serious: Yes (Hospitalization, Other)
  Sender: FDA-Public Use
  Company Number: IN-WATSON-2011-21447

PATIENT
  Age: 61 Year
  Sex: Male

DRUGS (3)
  1. FUROSEMIDE [Suspect]
     Indication: RENAL FAILURE ACUTE
     Dosage: 40 MG, BID
     Route: 065
  2. TORSEMIDE [Suspect]
     Indication: RENAL FAILURE ACUTE
  3. METOLAZONE [Suspect]
     Indication: RENAL FAILURE ACUTE

REACTIONS (2)
  - AZOTAEMIA [None]
  - RENAL IMPAIRMENT [None]
